FAERS Safety Report 4826489-1 (Version None)
Quarter: 2005Q4

REPORT INFORMATION
  Report Type: 
  Country: None (occurrence: None)
  Receive Date: 20051014
  Receipt Date: 20050711
  Transmission Date: 20060501
  Serious: Yes (Other)
  Sender: FDA-Public Use
  Company Number: 2005061115

PATIENT

DRUGS (4)
  1. MACUGEN [Suspect]
     Indication: MACULAR DEGENERATION
     Dosage: (1 IN 6 WK), INTRAVITREOUS
     Dates: start: 20050222
  2. ASPIRIN [Concomitant]
  3. FLORINEF [Concomitant]
  4. TOPROL-XL [Concomitant]

REACTIONS (1)
  - EYE DISORDER [None]
